FAERS Safety Report 8170983-5 (Version None)
Quarter: 2012Q1

REPORT INFORMATION
  Report Type: 
  Country: None (occurrence: None)
  Receive Date: 20120228
  Receipt Date: 20120215
  Transmission Date: 20120608
  Serious: Yes (Death, Hospitalization)
  Sender: FDA-Public Use
  Company Number: KR-COVIDIEN/TYCO HEALTHCARE/MALLINCKRODT-T201200643

PATIENT
  Sex: Male
  Weight: 52.3 kg

DRUGS (9)
  1. ATIRON [Concomitant]
     Indication: COUGH
     Dosage: 3 DOSES
     Route: 065
  2. ULTRACET [Concomitant]
     Indication: PAIN MANAGEMENT
     Dosage: 1 TAB, TID
     Route: 065
     Dates: end: 20120115
  3. LEGALON [Concomitant]
     Indication: PROPHYLAXIS
     Dosage: 420 MG, UNK
     Route: 065
  4. SURFOLASE [Concomitant]
     Indication: COUGH
     Dosage: 200 MG, UNK
     Route: 065
  5. CURAN [Concomitant]
     Indication: GASTROINTESTINAL DISORDER THERAPY
     Dosage: 150 MG, UNK
     Route: 065
  6. EXALGO [Suspect]
     Indication: PAIN MANAGEMENT
     Dosage: 4 MG, QD
     Route: 048
     Dates: start: 20120111, end: 20120203
  7. LEVOTUSS [Concomitant]
     Indication: COUGH
     Dosage: 60 MG, UNK
     Route: 065
  8. URSA [Concomitant]
     Indication: LIVER FUNCTION TEST
     Dosage: 300 MG, UNK
     Route: 065
  9. GASMOTIN [Concomitant]
     Indication: GASTROINTESTINAL DISORDER THERAPY
     Dosage: 5 MG, UNK
     Route: 065

REACTIONS (1)
  - DISEASE PROGRESSION [None]
